FAERS Safety Report 20125267 (Version 3)
Quarter: 2022Q1

REPORT INFORMATION
  Report Type: Report from Study
  Country: ES (occurrence: ES)
  Receive Date: 20211129
  Receipt Date: 20220106
  Transmission Date: 20220423
  Serious: Yes (Hospitalization)
  Sender: FDA-Public Use
  Company Number: ES-KARYOPHARM-2021KPT001467

PATIENT
  Age: 66 Year
  Sex: Female

DRUGS (7)
  1. SELINEXOR [Suspect]
     Active Substance: SELINEXOR
     Indication: Gastrointestinal stromal tumour
     Dosage: 100 MG, WEEKLY
     Route: 048
     Dates: start: 20200522, end: 20200615
  2. SELINEXOR [Suspect]
     Active Substance: SELINEXOR
     Dosage: UNK UNK, WEEKLY
     Route: 048
     Dates: start: 20200619
  3. GLIVEC [Suspect]
     Active Substance: IMATINIB MESYLATE
     Indication: Gastrointestinal stromal tumour
     Dosage: 400 MG, QD
     Route: 048
     Dates: start: 20200522
  4. TEVETENS [Concomitant]
  5. TOUJEO [Concomitant]
     Active Substance: INSULIN GLARGINE
  6. PRIMPERAN [Concomitant]
     Active Substance: METOCLOPRAMIDE HYDROCHLORIDE
     Dosage: UNK, PRN
  7. ONDANSETRON [Concomitant]
     Active Substance: ONDANSETRON
     Dosage: 8 MG, BID

REACTIONS (1)
  - Vomiting [Recovered/Resolved]

NARRATIVE: CASE EVENT DATE: 20200614
